FAERS Safety Report 4793572-9 (Version None)
Quarter: 2005Q4

REPORT INFORMATION
  Report Type: 
  Country: None (occurrence: None)
  Receive Date: 20051006
  Receipt Date: 20050923
  Transmission Date: 20060501
  Serious: Yes (Hospitalization, Other)
  Sender: FDA-Public Use
  Company Number: KII-2005-0018792

PATIENT
  Age: 37 Year
  Sex: Male

DRUGS (1)
  1. MORPHINE SULFATE [Suspect]
     Dosage: ORAL
     Route: 048

REACTIONS (18)
  - ANOXIC ENCEPHALOPATHY [None]
  - ASPIRATION [None]
  - BLOOD AMYLASE INCREASED [None]
  - BLOOD PRESSURE DECREASED [None]
  - BLOOD PRESSURE INCREASED [None]
  - BRAIN DAMAGE [None]
  - BRAIN STEM INFARCTION [None]
  - BRAIN STEM SYNDROME [None]
  - COMA [None]
  - DRUG WITHDRAWAL SYNDROME [None]
  - HEPATIC STEATOSIS [None]
  - HYPERHIDROSIS [None]
  - HYPERTENSION [None]
  - HYPOVENTILATION [None]
  - MYOCARDIAL INFARCTION [None]
  - RESPIRATORY RATE INCREASED [None]
  - RESTLESSNESS [None]
  - TACHYCARDIA [None]
